FAERS Safety Report 9790705 (Version 2)
Quarter: 2014Q1

REPORT INFORMATION
  Report Type: Report from Study
  Country: FR (occurrence: FR)
  Receive Date: 20131231
  Receipt Date: 20140129
  Transmission Date: 20141002
  Serious: Yes (Hospitalization)
  Sender: FDA-Public Use
  Company Number: FR-GLAXOSMITHKLINE-B0956389A

PATIENT
  Age: 53 Year
  Sex: Female

DRUGS (2)
  1. LAPATINIB [Suspect]
     Indication: BREAST CANCER RECURRENT
     Dosage: 750MG PER DAY
     Route: 048
     Dates: start: 20130918, end: 20131114
  2. BKM120 [Suspect]
     Indication: BREAST CANCER RECURRENT
     Dosage: 80MG PER DAY
     Route: 048
     Dates: start: 20130918, end: 20131114

REACTIONS (1)
  - General physical health deterioration [Recovered/Resolved with Sequelae]
